FAERS Safety Report 8009666-0 (Version None)
Quarter: 2011Q4

REPORT INFORMATION
  Report Type: 
  Country: None (occurrence: None)
  Receive Date: 20111228
  Receipt Date: 20111219
  Transmission Date: 20120403
  Serious: No
  Sender: FDA-Public Use
  Company Number: US-BIOGENIDEC-2011BI024825

PATIENT
  Sex: Female

DRUGS (1)
  1. TYSABRI [Suspect]
     Indication: MULTIPLE SCLEROSIS
     Route: 042
     Dates: start: 20110603

REACTIONS (20)
  - ERYTHEMA [None]
  - HYPOAESTHESIA [None]
  - FATIGUE [None]
  - NASOPHARYNGITIS [None]
  - EYE DISORDER [None]
  - CONCUSSION [None]
  - DYSPNOEA [None]
  - OEDEMA PERIPHERAL [None]
  - SWELLING FACE [None]
  - PYREXIA [None]
  - PRURITUS [None]
  - HYPOTENSION [None]
  - RASH PAPULAR [None]
  - ABDOMINAL PAIN [None]
  - HEAD INJURY [None]
  - LACERATION [None]
  - OROPHARYNGEAL PAIN [None]
  - PAIN [None]
  - FALL [None]
  - HYPERSENSITIVITY [None]
